FAERS Safety Report 26073603 (Version 1)
Quarter: 2025Q4

REPORT INFORMATION
  Report Type: Spontaneous
  Country: CA (occurrence: CA)
  Receive Date: 20251121
  Receipt Date: 20251121
  Transmission Date: 20260118
  Serious: Yes (Life-Threatening)
  Sender: APOTEX
  Company Number: CA-PGRTD-001155463

PATIENT
  Sex: Male

DRUGS (4)
  1. DEXAMETHASONE [Suspect]
     Active Substance: DEXAMETHASONE
     Indication: Extubation
     Route: 065
  2. CAFFEINE [Concomitant]
     Active Substance: CAFFEINE
     Route: 065
  3. SODIUM CHLORIDE [Concomitant]
     Active Substance: SODIUM CHLORIDE
     Route: 065
  4. VITAMIN D [Concomitant]
     Active Substance: VITAMIN D NOS
     Route: 065

REACTIONS (4)
  - Ventricular hypertrophy [Unknown]
  - Left ventricular dysfunction [Unknown]
  - Oxygen consumption increased [Unknown]
  - Hyperglycaemia [Unknown]
